FAERS Safety Report 16785613 (Version 10)
Quarter: 2024Q1

REPORT INFORMATION
  Report Type: Spontaneous
  Country: US (occurrence: US)
  Receive Date: 20190909
  Receipt Date: 20240112
  Transmission Date: 20240409
  Serious: No
  Sender: FDA-Public Use
  Company Number: US-PFIZER INC-2019386974

PATIENT
  Age: 60 Year
  Sex: Female
  Weight: 53.07 kg

DRUGS (2)
  1. PREMARIN [Suspect]
     Active Substance: ESTROGENS, CONJUGATED
     Indication: Hormone replacement therapy
     Dosage: 1.25 MG, 1X/DAY
  2. PREMARIN [Suspect]
     Active Substance: ESTROGENS, CONJUGATED
     Dosage: STRENGTH: TABLET-0.625 MG; TABLETS EVERY OTHER DAY
     Dates: start: 202312

REACTIONS (7)
  - Psychotic disorder [Unknown]
  - Illness [Unknown]
  - Gastroenteritis viral [Unknown]
  - Mood swings [Unknown]
  - Therapeutic response shortened [Unknown]
  - Weight increased [Unknown]
  - Intentional product misuse [Unknown]

NARRATIVE: CASE EVENT DATE: 20221101
